FAERS Safety Report 16979657 (Version 1)
Quarter: 2019Q4

REPORT INFORMATION
  Report Type: Spontaneous
  Country: US (occurrence: US)
  Receive Date: 20191031
  Receipt Date: 20191031
  Transmission Date: 20200122
  Serious: Yes (Hospitalization, Other)
  Sender: FDA-Public Use
  Company Number: US-IGSA-SR10009350

PATIENT
  Age: 67 Year
  Sex: Male

DRUGS (2)
  1. FACTOR VIII (HUMAN) [Suspect]
     Active Substance: ANTIHEMOPHILIC FACTOR HUMAN
     Indication: FACTOR VIII DEFICIENCY
     Route: 065
  2. FACTOR VIII (HUMAN) [Suspect]
     Active Substance: ANTIHEMOPHILIC FACTOR HUMAN
     Indication: GASTROINTESTINAL HAEMORRHAGE

REACTIONS (2)
  - Chest pain [Unknown]
  - Myocardial infarction [Unknown]
